FAERS Safety Report 21859567 (Version 1)
Quarter: 2023Q1

REPORT INFORMATION
  Report Type: Spontaneous
  Country: US (occurrence: US)
  Receive Date: 20230113
  Receipt Date: 20230113
  Transmission Date: 20230418
  Serious: No
  Sender: FDA-Public Use
  Company Number: US-SA-SAC20230113000271

PATIENT
  Sex: Male

DRUGS (1)
  1. DUPIXENT [Suspect]
     Active Substance: DUPILUMAB
     Dosage: 300 MG , FREQUENCY: OTHER
     Route: 058

REACTIONS (3)
  - Injection site pain [Unknown]
  - Product preparation error [Unknown]
  - Product dose omission in error [Unknown]
